FAERS Safety Report 23783638 (Version 1)
Quarter: 2024Q2

REPORT INFORMATION
  Report Type: Spontaneous
  Country: US (occurrence: US)
  Receive Date: 20240425
  Receipt Date: 20240425
  Transmission Date: 20240716
  Serious: No
  Sender: FDA-Public Use
  Company Number: US-VERTEX PHARMACEUTICALS-2024-007059

PATIENT

DRUGS (2)
  1. TRIKAFTA [Suspect]
     Active Substance: ELEXACAFTOR\IVACAFTOR\TEZACAFTOR
     Indication: Cystic fibrosis
     Dosage: FULL DOSE
     Route: 048
  2. TRIKAFTA [Suspect]
     Active Substance: ELEXACAFTOR\IVACAFTOR\TEZACAFTOR
     Dosage: ONE ORANGE PILL
     Route: 048
     Dates: start: 2021

REACTIONS (5)
  - Anxiety [Recovering/Resolving]
  - Aphasia [Recovering/Resolving]
  - Infection [Recovering/Resolving]
  - Pulmonary haemorrhage [Recovering/Resolving]
  - Depressed mood [Recovering/Resolving]
